FAERS Safety Report 4616398-5 (Version None)
Quarter: 2005Q1

REPORT INFORMATION
  Report Type: 
  Country: None (occurrence: None)
  Receive Date: 20050321
  Receipt Date: 20040317
  Transmission Date: 20050727
  Serious: Yes (Death, Hospitalization)
  Sender: FDA-Public Use
  Company Number: 7743

PATIENT
  Age: 36 Year
  Sex: Male

DRUGS (11)
  1. FLUOROURACIL [Suspect]
     Indication: COLORECTAL CANCER
     Dosage: 1810 IV
     Route: 042
     Dates: start: 20040108, end: 20040303
  2. LEUCOVORIN CALCIUM [Suspect]
     Indication: COLORECTAL CANCER
     Dosage: 260 IV
     Route: 042
     Dates: start: 20040108, end: 20040302
  3. OXALIPLATIN [Suspect]
     Indication: COLORECTAL CANCER
     Dosage: 154 MG IV
     Route: 042
     Dates: start: 20040108, end: 20040301
  4. CLONIDINE [Concomitant]
  5. LOVENOX [Concomitant]
  6. EPOGEN [Concomitant]
  7. PHENERGAN [Concomitant]
  8. ZOFRAN [Concomitant]
  9. ATIVAN [Concomitant]
  10. OXY-IR [Concomitant]
  11. MEGACE [Concomitant]

REACTIONS (23)
  - ANURIA [None]
  - BLOOD CREATINE INCREASED [None]
  - BLOOD SODIUM DECREASED [None]
  - BLOOD UREA INCREASED [None]
  - BODY TEMPERATURE INCREASED [None]
  - CARDIAC ENZYMES INCREASED [None]
  - CATHETER RELATED INFECTION [None]
  - CONSTIPATION [None]
  - DEHYDRATION [None]
  - GASTRIC ULCER HAEMORRHAGE [None]
  - GASTROINTESTINAL OBSTRUCTION [None]
  - HAEMATOCHEZIA [None]
  - HAEMOGLOBIN DECREASED [None]
  - HEART RATE INCREASED [None]
  - HYPOTENSION [None]
  - NEOPLASM [None]
  - PALPITATIONS [None]
  - PULMONARY OEDEMA [None]
  - RESPIRATORY DISTRESS [None]
  - RESPIRATORY RATE INCREASED [None]
  - SEPTIC SHOCK [None]
  - STAPHYLOCOCCAL SEPSIS [None]
  - VOMITING [None]
